FAERS Safety Report 4458313-3 (Version None)
Quarter: 2004Q3

REPORT INFORMATION
  Report Type: 
  Country: None (occurrence: None)
  Receive Date: 20040924
  Receipt Date: 20040921
  Transmission Date: 20050211
  Serious: Yes (Death, Other)
  Sender: FDA-Public Use
  Company Number: PHFR2004GB03563

PATIENT
  Sex: Male

DRUGS (2)
  1. TEGRETOL [Suspect]
  2. LAMOTRIGINE [Suspect]

REACTIONS (3)
  - CONVULSION [None]
  - PULMONARY OEDEMA [None]
  - RESPIRATORY DEPRESSION [None]
